FAERS Safety Report 20756863 (Version 2)
Quarter: 2022Q3

REPORT INFORMATION
  Report Type: Spontaneous
  Country: US (occurrence: US)
  Receive Date: 20220427
  Receipt Date: 20220909
  Transmission Date: 20221027
  Serious: No
  Sender: FDA-Public Use
  Company Number: US-PFIZER INC-202200469437

PATIENT
  Age: 52 Year
  Sex: Female

DRUGS (1)
  1. IBRANCE [Suspect]
     Active Substance: PALBOCICLIB
     Dosage: UNK
     Dates: start: 20211228

REACTIONS (6)
  - Product dose omission issue [Unknown]
  - Dry skin [Recovering/Resolving]
  - Dry eye [Unknown]
  - Bone pain [Unknown]
  - Hair texture abnormal [Unknown]
  - Product dose omission in error [Unknown]
